FAERS Safety Report 15138458 (Version 1)
Quarter: 2018Q3

REPORT INFORMATION
  Report Type: Spontaneous
  Country: DE (occurrence: DE)
  Receive Date: 20180713
  Receipt Date: 20180713
  Transmission Date: 20181010
  Serious: Yes (Hospitalization)
  Sender: FDA-Public Use
  Company Number: DE-DRREDDYS-GER/GER/18/0101704

PATIENT
  Age: 38 Year
  Sex: Male

DRUGS (1)
  1. VENLAFAXINE [Suspect]
     Active Substance: VENLAFAXINE HYDROCHLORIDE
     Indication: PRODUCT USED FOR UNKNOWN INDICATION
     Dosage: 75 MG, 1?0?1?0

REACTIONS (6)
  - Depressed mood [Unknown]
  - Disturbance in attention [Unknown]
  - Fatigue [Unknown]
  - Wound [Unknown]
  - Syncope [Unknown]
  - Fall [Unknown]
